FAERS Safety Report 23731976 (Version 1)
Quarter: 2024Q2

REPORT INFORMATION
  Report Type: Spontaneous
  Country: US (occurrence: US)
  Receive Date: 20240411
  Receipt Date: 20240411
  Transmission Date: 20240716
  Serious: Yes (Hospitalization)
  Sender: FDA-Public Use
  Company Number: US-MYLANLABS-2024M1031433

PATIENT
  Sex: Female

DRUGS (1)
  1. GABAPENTIN [Suspect]
     Active Substance: GABAPENTIN
     Indication: Product used for unknown indication
     Dosage: UNK
     Route: 065

REACTIONS (53)
  - Syncope [Unknown]
  - Vulvovaginal burning sensation [Unknown]
  - Increased tendency to bruise [Unknown]
  - Ear discomfort [Unknown]
  - Dyspnoea [Unknown]
  - Blood pressure systolic increased [Unknown]
  - Disturbance in attention [Unknown]
  - Diabetes insipidus [Unknown]
  - Photophobia [Unknown]
  - Balance disorder [Unknown]
  - Sneezing [Unknown]
  - Euphoric mood [Unknown]
  - Urinary retention [Unknown]
  - Vision blurred [Unknown]
  - Hepatic enzyme abnormal [Unknown]
  - Paraesthesia [Unknown]
  - Skin irritation [Unknown]
  - Anaemia [Unknown]
  - Hepatic cyst [Unknown]
  - Walking disability [Unknown]
  - Joint swelling [Unknown]
  - Eye irritation [Unknown]
  - Rhinorrhoea [Unknown]
  - Heart rate increased [Unknown]
  - Weight increased [Unknown]
  - Blood bilirubin abnormal [Unknown]
  - Dysacusis [Unknown]
  - Drug intolerance [Unknown]
  - Deafness [Unknown]
  - Leukopenia [Unknown]
  - Type I hypersensitivity [Unknown]
  - Feeling abnormal [Unknown]
  - Urethritis noninfective [Unknown]
  - Erythema [Unknown]
  - Nasal congestion [Unknown]
  - Blister [Unknown]
  - Condition aggravated [Unknown]
  - Illness [Unknown]
  - Chest discomfort [Unknown]
  - Pruritus [Unknown]
  - Diarrhoea [Unknown]
  - Renal failure [Unknown]
  - Rash [Unknown]
  - Malaise [Unknown]
  - Urticaria [Unknown]
  - Headache [Unknown]
  - Urinary incontinence [Unknown]
  - Nausea [Unknown]
  - Constipation [Unknown]
  - Somnolence [Unknown]
  - Thrombocytopenia [Unknown]
  - Dizziness [Unknown]
  - Vomiting [Unknown]

NARRATIVE: CASE EVENT DATE: 20170805
